FAERS Safety Report 18513689 (Version 1)
Quarter: 2020Q4

REPORT INFORMATION
  Report Type: Spontaneous
  Country: US (occurrence: US)
  Receive Date: 20201118
  Receipt Date: 20201118
  Transmission Date: 20210114
  Serious: No
  Sender: FDA-Public Use
  Company Number: US-UNICHEM PHARMACEUTICALS (USA) INC-UCM201911-000659

PATIENT
  Age: 83 Year
  Sex: Male
  Weight: 73 kg

DRUGS (9)
  1. FAMOTIDINE. [Concomitant]
     Active Substance: FAMOTIDINE
     Indication: GASTRIC PH DECREASED
  2. LEVOTHYROXINE. [Concomitant]
     Active Substance: LEVOTHYROXINE
     Indication: HYPOTHYROIDISM
  3. EXCEDRIN [Concomitant]
     Active Substance: ACETAMINOPHEN\ASPIRIN\CAFFEINE
     Indication: PAIN
     Dosage: 250 MG OF ACETAMINOPHEN, 250 MG OF ASPIRIN, AND 65 MG OF CAFFEINE
  4. AMLODIPINE [Suspect]
     Active Substance: AMLODIPINE BESYLATE
     Indication: HYPERTENSION
     Route: 048
  5. MELATONIN [Concomitant]
     Active Substance: MELATONIN
     Indication: SLEEP DISORDER
  6. LISINOPRIL. [Concomitant]
     Active Substance: LISINOPRIL
     Indication: HYPERTENSION
  7. PRESERVISION AREDS 2 [Concomitant]
     Active Substance: MINERALS\VITAMINS
     Indication: EYE DISORDER
  8. TYLENOL [Concomitant]
     Active Substance: ACETAMINOPHEN
     Indication: PAIN
     Dosage: SOMETIMES TAKES TWICE OR THRICE A DAY, IF REQUIRED
  9. ATENOLOL. [Concomitant]
     Active Substance: ATENOLOL
     Indication: HEART RATE ABNORMAL

REACTIONS (4)
  - Product quality issue [Unknown]
  - Product coating issue [Unknown]
  - Oropharyngeal pain [Recovering/Resolving]
  - Dysphagia [Unknown]
